FAERS Safety Report 12448061 (Version 1)
Quarter: 2016Q2

REPORT INFORMATION
  Report Type: Spontaneous
  Country: AU (occurrence: AU)
  Receive Date: 20160608
  Receipt Date: 20160608
  Transmission Date: 20160815
  Serious: Yes (Other)
  Sender: FDA-Public Use
  Company Number: AU-GILEAD-2016-0217201

PATIENT
  Age: 46 Year
  Sex: Male

DRUGS (6)
  1. INSULIN [Concomitant]
     Active Substance: INSULIN NOS
  2. ESOMEPRAZOLE [Concomitant]
     Active Substance: ESOMEPRAZOLE
  3. METHAMPHETAMINE [Concomitant]
     Active Substance: METHAMPHETAMINE
  4. PERINDOPRIL [Concomitant]
     Active Substance: PERINDOPRIL
  5. TRUVADA [Suspect]
     Active Substance: EMTRICITABINE\TENOFOVIR DISOPROXIL FUMARATE
     Indication: HIV INFECTION
     Route: 065
  6. ATAZANAVIR [Suspect]
     Active Substance: ATAZANAVIR
     Indication: HIV INFECTION
     Dosage: UNK
     Route: 065
     Dates: start: 20140925

REACTIONS (2)
  - Paranoia [Unknown]
  - Jaundice [Unknown]
